FAERS Safety Report 5887389-1 (Version None)
Quarter: 2008Q3

REPORT INFORMATION
  Report Type: 
  Country: None (occurrence: None)
  Receive Date: 20080915
  Receipt Date: 20080911
  Transmission Date: 20090109
  Serious: Yes (Death, Hospitalization)
  Sender: FDA-Public Use
  Company Number: 2008SP015788

PATIENT
  Age: 50 Year
  Sex: Female

DRUGS (2)
  1. PEG-INTRON [Suspect]
     Indication: HEPATITIS C
     Dosage: 120 MCG; QW
     Route: 048
     Dates: start: 20080515
  2. REBETOL [Suspect]
     Indication: HEPATITIS C
     Dosage: 100 MG; QD; PO
     Route: 048
     Dates: start: 20080515

REACTIONS (3)
  - PNEUMONIA [None]
  - RESPIRATORY FAILURE [None]
  - SEPTIC SHOCK [None]
